FAERS Safety Report 8874916 (Version 1)
Quarter: 2012Q4

REPORT INFORMATION
  Report Type: 
  Country: US (occurrence: US)
  Receive Date: 20121023
  Receipt Date: 20121023
  Transmission Date: 20130627
  Serious: No
  Sender: FDA-Public Use
  Company Number: US-BAYER-2012-111055

PATIENT
  Sex: Female
  Weight: 61.22 kg

DRUGS (5)
  1. BETASERON [Suspect]
     Indication: MULTIPLE SCLEROSIS
     Dosage: 0.25 mg, QOD
     Route: 058
  2. PROZAC [Concomitant]
     Dosage: 10 mg, UNK
  3. AMOXICILLIN [Concomitant]
     Dosage: 250 mg, UNK
  4. VITAMIN D2 [Concomitant]
     Dosage: 400 iu, UNK
  5. WELLBUTRIN [Concomitant]
     Dosage: 75 mg, UNK

REACTIONS (3)
  - Pain in extremity [Unknown]
  - Injection site erythema [Unknown]
  - Injection site haematoma [Unknown]
